FAERS Safety Report 25251718 (Version 7)
Quarter: 2025Q3

REPORT INFORMATION
  Report Type: Spontaneous
  Country: JP (occurrence: JP)
  Receive Date: 20250429
  Receipt Date: 20250912
  Transmission Date: 20251021
  Serious: Yes (Hospitalization)
  Sender: PFIZER
  Company Number: JP-PFIZER INC-PV202500050879

PATIENT
  Age: 76 Year
  Sex: Male

DRUGS (28)
  1. ELREXFIO [Suspect]
     Active Substance: ELRANATAMAB-BCMM
     Indication: Plasma cell myeloma
     Route: 058
     Dates: start: 20250218, end: 20250218
  2. ELREXFIO [Suspect]
     Active Substance: ELRANATAMAB-BCMM
     Route: 058
     Dates: start: 20250221, end: 20250221
  3. ELREXFIO [Suspect]
     Active Substance: ELRANATAMAB-BCMM
     Route: 058
     Dates: start: 20250225, end: 20250225
  4. ELREXFIO [Suspect]
     Active Substance: ELRANATAMAB-BCMM
     Route: 058
     Dates: start: 20250304, end: 20250304
  5. ELREXFIO [Suspect]
     Active Substance: ELRANATAMAB-BCMM
     Route: 058
     Dates: start: 20250321, end: 20250321
  6. ELREXFIO [Suspect]
     Active Substance: ELRANATAMAB-BCMM
     Route: 058
     Dates: start: 20250327, end: 20250327
  7. ELREXFIO [Suspect]
     Active Substance: ELRANATAMAB-BCMM
     Route: 058
     Dates: start: 20250402, end: 20250402
  8. ELREXFIO [Suspect]
     Active Substance: ELRANATAMAB-BCMM
     Route: 058
     Dates: start: 20250409, end: 20250409
  9. ASPIRIN [Concomitant]
     Active Substance: ASPIRIN
     Route: 048
  10. FEBUXOSTAT [Concomitant]
     Active Substance: FEBUXOSTAT
     Indication: Hyperuricaemia
     Dosage: 40 MG, 1X/DAY AFTER BREAKFAST
     Route: 048
  11. CLOPIDOGREL [Concomitant]
     Active Substance: CLOPIDOGREL BISULFATE
     Indication: Cerebral infarction
     Dosage: 75 MG, 1X/DAY AFTER BREAKFAST
  12. CLOPIDOGREL [Concomitant]
     Active Substance: CLOPIDOGREL BISULFATE
     Indication: Myocardial ischaemia
  13. ASPIRIN [Concomitant]
     Active Substance: ASPIRIN
     Indication: Myocardial ischaemia
     Dosage: 100 MG, 1X/DAY AFTER BREAKFAST
  14. VONOPRAZAN FUMARATE [Concomitant]
     Active Substance: VONOPRAZAN FUMARATE
     Indication: Gastrooesophageal reflux disease
     Dosage: 10 MG, 1X/DAY AFTER BREAKFAST
  15. CARVEDILOL [Concomitant]
     Active Substance: CARVEDILOL
     Indication: Cardiac failure chronic
     Dosage: 10 MG, 1X/DAY AFTER BREAKFAST
  16. AZOSEMIDE [Concomitant]
     Active Substance: AZOSEMIDE
     Indication: Cardiac failure chronic
     Dosage: 30 MG, 1X/DAY AFTER BREAKFAST
  17. SULFAMETHOXAZOLE\TRIMETHOPRIM [Concomitant]
     Active Substance: SULFAMETHOXAZOLE\TRIMETHOPRIM
     Indication: Prophylaxis
     Dosage: 0.5 DF, 1X/DAY AFTER BREAKFAST
  18. ACYCLOVIR [Concomitant]
     Active Substance: ACYCLOVIR
     Indication: Prophylaxis
     Dosage: 200 MG, 1X/DAY AFTER BREAKFAST
  19. CELECOXIB [Concomitant]
     Active Substance: CELECOXIB
     Indication: Compression fracture
     Dosage: 100 MG, 2X/DAY AFTER BREAKFAST AND DINNER
  20. NICORANDIL [Concomitant]
     Active Substance: NICORANDIL
     Indication: Angina pectoris
     Dosage: 5 MG, 2X/DAY AFTER BREAKFAST AND DINNER
  21. REBAMIPIDE [Concomitant]
     Active Substance: REBAMIPIDE
     Indication: Chronic gastritis
     Dosage: 5 MG, 2X/DAY AFTER BREAKFAST, LUNCH, AND DINNER
  22. MIYA-BM [Concomitant]
     Active Substance: CLOSTRIDIUM BUTYRICUM SPORES STRAIN M-55
     Indication: Dysbiosis
     Dosage: 1 DF, 3X/DAY AFTER BREAKFAST, LUNCH, AND DINNER
  23. URSODIOL [Concomitant]
     Active Substance: URSODIOL
     Indication: Bile duct stone
     Dosage: 100 MG, 3X/DAY AFTER BREAKFAST, LUNCH, AND DINNER
  24. EPINASTINE HYDROCHLORIDE [Concomitant]
     Active Substance: EPINASTINE HYDROCHLORIDE
     Indication: Rhinitis allergic
     Dosage: 20 MG, 1X/DAY AFTER DINNER
  25. METGLUCO [Concomitant]
     Active Substance: METFORMIN HYDROCHLORIDE
     Indication: Diabetes mellitus
     Dosage: 500 MG, 2X/DAY AFTER BREAKFAST AND DINNER
  26. MAGNESIUM OXIDE [Concomitant]
     Active Substance: MAGNESIUM OXIDE
     Indication: Constipation
     Dosage: 330 MG, 3X/DAY AFTER BREAKFAST, LUNCH, AND DINNER
  27. SITAFLOXACIN [Concomitant]
     Active Substance: SITAFLOXACIN
     Indication: Escherichia infection
     Dosage: 100 MG, 1X/DAY AFTER BREAKFAST
  28. ASPIRIN [Concomitant]
     Active Substance: ASPIRIN

REACTIONS (6)
  - Cholangitis [Recovered/Resolved]
  - Bile duct stone [Recovered/Resolved]
  - Condition aggravated [Recovered/Resolved]
  - C-reactive protein increased [Unknown]
  - Infection [Recovered/Resolved]
  - Off label use [Unknown]

NARRATIVE: CASE EVENT DATE: 20250101
